FAERS Safety Report 15684555 (Version 1)
Quarter: 2018Q4

REPORT INFORMATION
  Report Type: Spontaneous
  Country: US (occurrence: US)
  Receive Date: 20181204
  Receipt Date: 20181204
  Transmission Date: 20190205
  Serious: No
  Sender: FDA-Public Use
  Company Number: US-VERTEX PHARMACEUTICALS-2018-008910

PATIENT
  Age: 5 Year
  Sex: Female

DRUGS (1)
  1. ORKAMBI [Suspect]
     Active Substance: IVACAFTOR\LUMACAFTOR
     Indication: CYSTIC FIBROSIS
     Dosage: 150/188 MG (1 PACKET), BID
     Route: 048
     Dates: start: 20181103

REACTIONS (3)
  - Nasopharyngitis [Unknown]
  - Increased bronchial secretion [Unknown]
  - Cough [Unknown]

NARRATIVE: CASE EVENT DATE: 20181120
